FAERS Safety Report 14618869 (Version 2)
Quarter: 2019Q2

REPORT INFORMATION
  Report Type: Spontaneous
  Country: US (occurrence: US)
  Receive Date: 20180309
  Receipt Date: 20190401
  Transmission Date: 20190711
  Serious: Yes (Other)
  Sender: FDA-Public Use
  Company Number: US-VANDA PHARMACEUTICALS, INC-2018TASUS002119

PATIENT
  Age: 77 Year
  Sex: Male

DRUGS (1)
  1. HETLIOZ [Suspect]
     Active Substance: TASIMELTEON
     Indication: CIRCADIAN RHYTHM SLEEP DISORDER
     Dosage: 20 MG, QHS
     Route: 048
     Dates: start: 20180119

REACTIONS (6)
  - Fatigue [Unknown]
  - Middle insomnia [Unknown]
  - Drug ineffective [Unknown]
  - Finger amputation [Unknown]
  - Feeling abnormal [Unknown]
  - Withdrawal syndrome [Unknown]
